FAERS Safety Report 9771499 (Version 2)
Quarter: 2014Q1

REPORT INFORMATION
  Report Type: Report from Study
  Country: JP (occurrence: JP)
  Receive Date: 20131219
  Receipt Date: 20140108
  Transmission Date: 20141002
  Serious: Yes (Hospitalization)
  Sender: FDA-Public Use
  Company Number: JP-BIOGENIDEC-2013BI120250

PATIENT
  Age: 57 Year
  Sex: Male

DRUGS (12)
  1. TYSABRI [Suspect]
     Indication: RELAPSING-REMITTING MULTIPLE SCLEROSIS
     Dates: start: 20120116
  2. HARNAL D [Concomitant]
     Dates: start: 20100501
  3. BACTRAMIN [Concomitant]
     Dates: start: 20110504
  4. FAMOTIDINE D [Concomitant]
     Dates: start: 20121119
  5. CRESTOR [Concomitant]
     Dates: start: 20110311
  6. MAGMITT [Concomitant]
     Dates: start: 20120507
  7. BENET [Concomitant]
     Dates: start: 20101119
  8. TERNELIN [Concomitant]
     Dates: start: 20131029
  9. HIRUDOID [Concomitant]
     Dates: start: 20120513
  10. MYSER [Concomitant]
     Dates: start: 20120513
  11. XALATAN [Concomitant]
     Dates: start: 20120409
  12. LOXONIN [Concomitant]
     Dates: start: 20130727

REACTIONS (1)
  - White matter lesion [Unknown]
